FAERS Safety Report 9113337 (Version 1)
Quarter: 2013Q1

REPORT INFORMATION
  Report Type: Spontaneous
  Country: US (occurrence: US)
  Receive Date: 20130211
  Receipt Date: 20130211
  Transmission Date: 20140127
  Serious: No
  Sender: FDA-Public Use
  Company Number: US-009507513-1211USA001324

PATIENT
  Sex: 0

DRUGS (1)
  1. PROVENTIL [Suspect]

REACTIONS (4)
  - Adverse event [Recovered/Resolved]
  - Drug dose omission [Unknown]
  - Product packaging quantity issue [Unknown]
  - Product quality issue [Unknown]
